FAERS Safety Report 4586909-7 (Version None)
Quarter: 2005Q1

REPORT INFORMATION
  Report Type: 
  Country: None (occurrence: None)
  Receive Date: 20050216
  Receipt Date: 20050216
  Transmission Date: 20050727
  Serious: Yes (Disabling)
  Sender: FDA-Public Use
  Company Number: None

PATIENT
  Age: 64 Year
  Sex: Female
  Weight: 98.8842 kg

DRUGS (2)
  1. CELEBREX [Suspect]
     Indication: ARTHRALGIA
     Dosage: 200 MG QD PO
     Route: 048
     Dates: start: 20040423, end: 20040628
  2. CELEBREX [Suspect]
     Indication: BACK PAIN
     Dosage: 200 MG QD PO
     Route: 048
     Dates: start: 20040423, end: 20040628

REACTIONS (1)
  - RETINAL HAEMORRHAGE [None]
